FAERS Safety Report 5788463-0 (Version None)
Quarter: 2008Q2

REPORT INFORMATION
  Report Type: 
  Country: None (occurrence: None)
  Receive Date: 20080623
  Receipt Date: 20080609
  Transmission Date: 20081010
  Serious: Yes (Death, Hospitalization)
  Sender: FDA-Public Use
  Company Number: 2008AL006629

PATIENT
  Age: 75 Year
  Sex: Male

DRUGS (1)
  1. DIGOXIN [Suspect]
     Indication: ARRHYTHMIA
     Dosage: 0.25MG, QD, PO
     Route: 048
     Dates: start: 20060101, end: 20080503

REACTIONS (6)
  - ANOREXIA [None]
  - BLOOD URINE PRESENT [None]
  - CARDIAC VALVE DISEASE [None]
  - DYSURIA [None]
  - EATING DISORDER [None]
  - NAUSEA [None]
